FAERS Safety Report 18019382 (Version 1)
Quarter: 2020Q3

REPORT INFORMATION
  Report Type: Spontaneous
  Country: US (occurrence: US)
  Receive Date: 20200713
  Receipt Date: 20200713
  Transmission Date: 20201103
  Serious: No
  Sender: FDA-Public Use
  Company Number: None

PATIENT

DRUGS (2)
  1. LIDOCAINE HCL INJECTION [Suspect]
     Active Substance: LIDOCAINE HYDROCHLORIDE
     Dosage: TYPE: AMPULE, SIZE: 2ML
  2. DICYCLOMINE HCL [Suspect]
     Active Substance: DICYCLOMINE HYDROCHLORIDE
     Dosage: TYPE: AMPULE, SIZE: 2 ML

REACTIONS (4)
  - Product confusion [None]
  - Wrong product administered [None]
  - Product selection error [None]
  - Product dispensing error [None]
